FAERS Safety Report 5834595-8 (Version None)
Quarter: 2008Q3

REPORT INFORMATION
  Report Type: 
  Country: None (occurrence: None)
  Receive Date: 20080805
  Receipt Date: 20080724
  Transmission Date: 20090109
  Serious: Yes (Other)
  Sender: FDA-Public Use
  Company Number: JP-PFIZER INC-2008063552

PATIENT
  Age: 54 Year
  Sex: Female

DRUGS (2)
  1. CHANTIX [Suspect]
     Indication: SMOKING CESSATION THERAPY
     Dosage: DAILY DOSE:2MG
     Route: 048
  2. AMOXAPINE [Concomitant]
     Route: 048

REACTIONS (1)
  - EYELID OEDEMA [None]
